FAERS Safety Report 15659130 (Version 3)
Quarter: 2022Q3

REPORT INFORMATION
  Report Type: Spontaneous
  Country: JP (occurrence: JP)
  Receive Date: 20181127
  Receipt Date: 20220807
  Transmission Date: 20221026
  Serious: Yes (Other)
  Sender: FDA-Public Use
  Company Number: JP-SA-2018SA320272

PATIENT
  Sex: Male

DRUGS (2)
  1. TAXOTERE [Suspect]
     Active Substance: DOCETAXEL
     Indication: Non-small cell lung cancer
     Route: 041
  2. CISPLATIN [Concomitant]
     Active Substance: CISPLATIN
     Indication: Non-small cell lung cancer
     Route: 065

REACTIONS (1)
  - Bronchopulmonary aspergillosis [Unknown]
